FAERS Safety Report 4379744-6 (Version None)
Quarter: 2004Q2

REPORT INFORMATION
  Report Type: 
  Country: None (occurrence: None)
  Receive Date: 20040617
  Receipt Date: 20040608
  Transmission Date: 20050107
  Serious: Yes (Other)
  Sender: FDA-Public Use
  Company Number: FR-GLAXOSMITHKLINE-B0335065A

PATIENT
  Age: 52 Year
  Sex: Female

DRUGS (2)
  1. ZOVIRAX [Suspect]
     Indication: HERPES SIMPLEX
     Dosage: 200MG SEE DOSAGE TEXT
     Route: 048
     Dates: start: 19940101
  2. HORMONAL THERAPY [Concomitant]
     Indication: MENOPAUSE
     Dates: start: 20000101

REACTIONS (1)
  - HYPOTHYROIDISM [None]
